FAERS Safety Report 6596946-9 (Version None)
Quarter: 2010Q1

REPORT INFORMATION
  Report Type: 
  Country: None (occurrence: None)
  Receive Date: 20100222
  Receipt Date: 20100222
  Transmission Date: 20100710
  Serious: Yes (Disabling)
  Sender: FDA-Public Use
  Company Number: None

PATIENT
  Age: 64 Year
  Sex: Female
  Weight: 65.7716 kg

DRUGS (1)
  1. RECLAST [Suspect]
     Indication: OSTEOPENIA
     Dosage: IV DRIP
     Route: 041
     Dates: start: 20100208, end: 20100208

REACTIONS (7)
  - CIRCUMORAL OEDEMA [None]
  - HYPERSENSITIVITY [None]
  - JAW DISORDER [None]
  - OEDEMA MOUTH [None]
  - ORAL INFECTION [None]
  - STOMATITIS [None]
  - SWELLING [None]
